FAERS Safety Report 5389801-3 (Version None)
Quarter: 2007Q3

REPORT INFORMATION
  Report Type: 
  Country: None (occurrence: None)
  Receive Date: 20070713
  Receipt Date: 20070417
  Transmission Date: 20080115
  Serious: Yes (Hospitalization)
  Sender: FDA-Public Use
  Company Number: MPS1-10686

PATIENT
  Age: 24 Month
  Sex: Female

DRUGS (1)
  1. ALDURAZYME [Suspect]
     Indication: MUCOPOLYSACCHARIDOSIS I
     Dates: start: 20070404

REACTIONS (4)
  - RASH MACULO-PAPULAR [None]
  - SEPSIS [None]
  - URTICARIA [None]
  - VIRAL INFECTION [None]
